FAERS Safety Report 23951648 (Version 1)
Quarter: 2024Q2

REPORT INFORMATION
  Report Type: Spontaneous
  Country: US (occurrence: US)
  Receive Date: 20240607
  Receipt Date: 20240607
  Transmission Date: 20240715
  Serious: Yes (Other)
  Sender: FDA-Public Use
  Company Number: US-002147023-NVSC2024US115723

PATIENT
  Sex: Female

DRUGS (1)
  1. LEQVIO [Suspect]
     Active Substance: INCLISIRAN SODIUM
     Indication: Product used for unknown indication
     Dosage: UNK
     Route: 065

REACTIONS (8)
  - Myocardial infarction [Unknown]
  - Productive cough [Unknown]
  - Dyspepsia [Unknown]
  - Chest discomfort [Unknown]
  - Facial pain [Unknown]
  - Chest pain [Unknown]
  - Eructation [Unknown]
  - Pain in jaw [Unknown]
